FAERS Safety Report 5250295-X (Version None)
Quarter: 2007Q1

REPORT INFORMATION
  Report Type: 
  Country: None (occurrence: None)
  Receive Date: 20070228
  Receipt Date: 20060403
  Transmission Date: 20070707
  Serious: Yes (Life-Threatening, Hospitalization, Disabling, Other)
  Sender: FDA-Public Use
  Company Number: US-GLAXOSMITHKLINE-A0598237A

PATIENT
  Age: 16 Year
  Sex: Male
  Weight: 74.1 kg

DRUGS (4)
  1. LAMICTAL [Suspect]
     Indication: BIPOLAR DISORDER
     Dosage: 50MG SEE DOSAGE TEXT
     Route: 048
  2. RISPERDAL [Concomitant]
  3. ZOLOFT [Concomitant]
     Dosage: 100MG PER DAY
     Route: 048
  4. UNSPECIFIED MEDICATION [Concomitant]

REACTIONS (3)
  - MEDICATION ERROR [None]
  - OVERDOSE [None]
  - STEVENS-JOHNSON SYNDROME [None]
